FAERS Safety Report 19024946 (Version 1)
Quarter: 2021Q1

REPORT INFORMATION
  Report Type: Spontaneous
  Country: US (occurrence: US)
  Receive Date: 20210317
  Receipt Date: 20210317
  Transmission Date: 20210420
  Serious: Yes (Other)
  Sender: FDA-Public Use
  Company Number: None

PATIENT
  Age: 73 Year
  Sex: Male
  Weight: 110.7 kg

DRUGS (13)
  1. TAMSULOSIN 0.4 MG ORAL [Concomitant]
     Dates: start: 20210310
  2. TOCILIZUMAB. [Suspect]
     Active Substance: TOCILIZUMAB
     Indication: COVID-19 PNEUMONIA
     Dosage: ?          OTHER FREQUENCY:ONCE;?
     Route: 042
     Dates: start: 20210311, end: 20210311
  3. AMLODIPINE 5 MG ORAL [Concomitant]
     Dates: start: 20210310
  4. REMDESIVIR. [Suspect]
     Active Substance: REMDESIVIR
  5. ENOXAPARIN 30 MG SC [Concomitant]
     Dates: start: 20210311
  6. FINASTERIDE 5 MG ORAL [Concomitant]
     Dates: start: 20210310
  7. METOPROLOL TARTRATE 50 MG ORAL [Concomitant]
     Dates: start: 20210310
  8. INSULIN LISPRO SC 1 UNIT [Concomitant]
     Dates: start: 20210310
  9. REMDESIVIR 200 MG IV [Concomitant]
     Dates: start: 20210310
  10. OLANZAPINE 5 MG ORAL [Concomitant]
     Dates: start: 20210310
  11. PIPERACILLIN/TAZOBACTAM 3.375G IV [Concomitant]
     Dates: start: 20210311
  12. ACETAMINOPHEN 650 MG ORAL [Concomitant]
     Dates: start: 20210310
  13. ATORVASTATIN 40 MG ORAL [Concomitant]
     Dates: start: 20210310

REACTIONS (7)
  - Hypertension [None]
  - Infusion related reaction [None]
  - Tachycardia [None]
  - Wheezing [None]
  - Tachypnoea [None]
  - Agitation [None]
  - Stridor [None]

NARRATIVE: CASE EVENT DATE: 20210311
